FAERS Safety Report 7792763-2 (Version None)
Quarter: 2011Q4

REPORT INFORMATION
  Report Type: 
  Country: None (occurrence: None)
  Receive Date: 20111003
  Receipt Date: 20110927
  Transmission Date: 20120403
  Serious: Yes (Other)
  Sender: FDA-Public Use
  Company Number: US-SANOFI-AVENTIS-2011SA051942

PATIENT
  Age: 47 Year
  Sex: Female

DRUGS (2)
  1. LANTUS [Suspect]
     Dosage: AT BED AS DIRECTED DOSE:50 UNIT(S)
     Route: 058
  2. LANTUS [Suspect]
     Dosage: AT BED AS DIRECTED DOSE:50 UNIT(S)
     Route: 058

REACTIONS (1)
  - RENAL TRANSPLANT [None]
